FAERS Safety Report 5343351-9 (Version None)
Quarter: 2007Q2

REPORT INFORMATION
  Report Type: 
  Country: None (occurrence: None)
  Receive Date: 20070501
  Receipt Date: 20070110
  Transmission Date: 20071010
  Serious: No
  Sender: FDA-Public Use
  Company Number: 200710261US

PATIENT
  Age: 77 Year
  Sex: Female

DRUGS (10)
  1. KETEK [Suspect]
     Indication: BRONCHITIS
     Dosage: 800 MG QD
     Dates: start: 20070109, end: 20070109
  2. PSEUDOEPHEDRINE HYDROCHLORIDE, FEXOFENADINE (ALLEGRA-D /01413301/) [Concomitant]
  3. ZANTAC [Concomitant]
  4. SERTRALINE (ZOLOFT /01011401/) [Concomitant]
  5. ATORVASTATIN CALCIUM (LIPITOR) [Concomitant]
  6. DIGOXIN [Concomitant]
  7. FLOVENT [Concomitant]
  8. NICOTINIC ACID (NIASPAN) [Concomitant]
  9. ALTACE [Concomitant]
  10. DONEPEZIL HCL [Concomitant]

REACTIONS (3)
  - ABDOMINAL PAIN UPPER [None]
  - DIARRHOEA [None]
  - VISION BLURRED [None]
